FAERS Safety Report 5655586-6 (Version None)
Quarter: 2008Q1

REPORT INFORMATION
  Report Type: 
  Country: None (occurrence: None)
  Receive Date: 20080307
  Receipt Date: 20080303
  Transmission Date: 20080703
  Serious: Yes (Hospitalization)
  Sender: FDA-Public Use
  Company Number: JP-ASTRAZENECA-2008AP01665

PATIENT
  Age: 80 Year
  Sex: Male

DRUGS (3)
  1. CASODEX [Suspect]
     Indication: PROSTATE CANCER
     Route: 048
     Dates: end: 20080215
  2. CASODEX [Suspect]
     Route: 048
     Dates: start: 20080227
  3. LEUPROLIDE ACETATE [Suspect]
     Indication: PROSTATE CANCER
     Dosage: UNKNOWN DOSE
     Route: 058

REACTIONS (1)
  - HYPOTHERMIA [None]
